FAERS Safety Report 6906592-2 (Version None)
Quarter: 2010Q3

REPORT INFORMATION
  Report Type: 
  Country: None (occurrence: None)
  Receive Date: 20100708
  Receipt Date: 20100428
  Transmission Date: 20110219
  Serious: Yes (Other)
  Sender: FDA-Public Use
  Company Number: 2010054312

PATIENT
  Age: 48 Year
  Sex: Male
  Weight: 79.4 kg

DRUGS (2)
  1. CHANTIX [Suspect]
     Indication: SMOKING CESSATION THERAPY
     Dosage: 0.5 MG, 1X/DAY, ORAL
     Route: 048
     Dates: start: 20091201, end: 20100301
  2. LIPITOR [Concomitant]

REACTIONS (6)
  - ABNORMAL BEHAVIOUR [None]
  - ABNORMAL DREAMS [None]
  - AGITATION [None]
  - ANGER [None]
  - DEPRESSION [None]
  - MOOD SWINGS [None]
